FAERS Safety Report 14532013 (Version 1)
Quarter: 2018Q1

REPORT INFORMATION
  Report Type: Spontaneous
  Country: AU (occurrence: AU)
  Receive Date: 20180214
  Receipt Date: 20180214
  Transmission Date: 20180509
  Serious: Yes (Hospitalization)
  Sender: FDA-Public Use
  Company Number: AU-OTSUKA-2018_003683

PATIENT
  Age: 58 Year
  Sex: Male

DRUGS (9)
  1. AUGMENTIN DUO [Concomitant]
     Active Substance: AMOXICILLIN\CLAVULANATE POTASSIUM
     Indication: WOUND INFECTION
     Route: 065
     Dates: start: 20170720
  2. FLUCLOXACILLIN [Concomitant]
     Active Substance: FLUCLOXACILLIN
     Indication: PRODUCT USED FOR UNKNOWN INDICATION
     Dosage: 2 G, Q6H
     Route: 042
     Dates: start: 20170919, end: 20170920
  3. GENTAMYCIN [Concomitant]
     Active Substance: GENTAMICIN
     Indication: DIARRHOEA
     Dosage: 280 MG, QD
     Route: 065
  4. HALOPERIDOL. [Suspect]
     Active Substance: HALOPERIDOL
     Indication: PRODUCT USED FOR UNKNOWN INDICATION
     Dosage: 150 MG, QW
     Route: 030
  5. SODIUM VALPROATE [Suspect]
     Active Substance: VALPROATE SODIUM
     Indication: PRODUCT USED FOR UNKNOWN INDICATION
     Dosage: 2000 MG, UNK
     Route: 065
  6. CLOZARIL [Suspect]
     Active Substance: CLOZAPINE
     Indication: SCHIZOPHRENIA
     Dosage: UNK
     Route: 048
     Dates: start: 20130318, end: 20171010
  7. ABILIFY MAINTENA [Suspect]
     Active Substance: ARIPIPRAZOLE
     Indication: PRODUCT USED FOR UNKNOWN INDICATION
     Dosage: UNK
     Route: 065
  8. OLANZAPINE. [Suspect]
     Active Substance: OLANZAPINE
     Indication: AGITATION
     Dosage: 5 MG, UNK
     Route: 065
  9. CEPHALEXIN. [Concomitant]
     Active Substance: CEPHALEXIN
     Indication: INCISIONAL DRAINAGE
     Dosage: 500 MG, QID
     Route: 065
     Dates: start: 20170711

REACTIONS (14)
  - Psychotic disorder [Unknown]
  - Malaise [Unknown]
  - Hallucination, auditory [Unknown]
  - Drug ineffective [Unknown]
  - Neutrophil count decreased [Recovered/Resolved]
  - Diarrhoea [Unknown]
  - Food poisoning [Unknown]
  - Mental disorder [Not Recovered/Not Resolved]
  - Aggression [Unknown]
  - Neutropenia [Unknown]
  - Scrotal haematoma [Unknown]
  - Wound infection [Unknown]
  - White blood cell count decreased [Recovered/Resolved]
  - Constipation [Unknown]

NARRATIVE: CASE EVENT DATE: 20171009
